FAERS Safety Report 6200170-9 (Version None)
Quarter: 2009Q2

REPORT INFORMATION
  Report Type: 
  Country: None (occurrence: None)
  Receive Date: 20090522
  Receipt Date: 20090513
  Transmission Date: 20091009
  Serious: Yes (Hospitalization)
  Sender: FDA-Public Use
  Company Number: FR-JNJFOC-20090504837

PATIENT
  Age: 29 Year
  Sex: Male

DRUGS (1)
  1. IXPRIM [Suspect]
     Indication: TOOTHACHE
     Route: 048

REACTIONS (4)
  - GAIT DISTURBANCE [None]
  - MALAISE [None]
  - SOMNOLENCE [None]
  - TREMOR [None]
